FAERS Safety Report 24942602 (Version 1)
Quarter: 2025Q1

REPORT INFORMATION
  Report Type: Spontaneous
  Country: US (occurrence: None)
  Receive Date: 20250207
  Receipt Date: 20250207
  Transmission Date: 20250409
  Serious: Yes (Hospitalization)
  Sender: FDA-CTU
  Company Number: None

PATIENT
  Sex: Female

DRUGS (9)
  1. AMBRISENTAN [Suspect]
     Active Substance: AMBRISENTAN
     Indication: Pulmonary hypertension
     Dosage: FREQUENCY : DAILY;?
     Route: 048
     Dates: start: 20200805
  2. FUROSEMIDE [Concomitant]
     Active Substance: FUROSEMIDE
  3. HYDROCHLOROTTAB25MG [Concomitant]
  4. LETAIRIS [Concomitant]
     Active Substance: AMBRISENTAN
  5. LEVOTHYROXIN TAB 150MCG [Concomitant]
  6. NORVASC [Concomitant]
     Active Substance: AMLODIPINE BESYLATE
  7. POTASSIUM TAB 95MG [Concomitant]
  8. PROPO-N/APAP TAB 100-650 [Concomitant]
  9. SEREVENT DIS AER 50MCG [Concomitant]

REACTIONS (1)
  - Illness [None]
